FAERS Safety Report 18306396 (Version 6)
Quarter: 2021Q1

REPORT INFORMATION
  Report Type: Other
  Country: CA (occurrence: CA)
  Receive Date: 20200923
  Receipt Date: 20210105
  Transmission Date: 20210419
  Serious: Yes (Other)
  Sender: FDA-Public Use
  Company Number: CA-ROCHE-2403422

PATIENT
  Age: 54 Year
  Sex: Female

DRUGS (15)
  1. CLONAZEPAM. [Concomitant]
     Active Substance: CLONAZEPAM
     Dosage: 2MG, 3 TIMES PER DAY
  2. CYCLOBENZAPRINE. [Concomitant]
     Active Substance: CYCLOBENZAPRINE
     Dosage: 10 MG, 3 TIMES PER DAY
  3. CETRIZINE [Concomitant]
     Active Substance: CETIRIZINE HYDROCHLORIDE
     Dosage: 20 MG, TWICE PER DAY
  4. OCREVUS [Suspect]
     Active Substance: OCRELIZUMAB
     Route: 042
  5. OCREVUS [Suspect]
     Active Substance: OCRELIZUMAB
     Indication: RELAPSING-REMITTING MULTIPLE SCLEROSIS
     Dosage: 300 MG AT DAY 0 AND 14, THEN 600 MG EVERY 6 MONTH
     Route: 042
     Dates: start: 20190227
  6. HYDROMORPHONE [Concomitant]
     Active Substance: HYDROMORPHONE
     Dosage: 24 MG, ONE CAPSULE TWICE DAILY
  7. VENLAFAXINE [Concomitant]
     Active Substance: VENLAFAXINE HYDROCHLORIDE
  8. GABAPENTINE [Concomitant]
     Active Substance: GABAPENTIN
     Dosage: 400 MG 2 TABS 3X A DAY
  9. TYLENOL [Concomitant]
     Active Substance: ACETAMINOPHEN
     Dosage: 2?3 TIMES PER DAY
  10. GABAPENTIN. [Concomitant]
     Active Substance: GABAPENTIN
     Dosage: 400 MG, 2 TIMES PER DAY
  11. MODAFINIL. [Concomitant]
     Active Substance: MODAFINIL
     Dosage: 100 MG TABLET, TWICE DAILY
  12. REACTINE (CANADA) [Concomitant]
     Active Substance: CETIRIZINE HYDROCHLORIDE
  13. ROSUVASTATIN. [Concomitant]
     Active Substance: ROSUVASTATIN
     Dosage: 10 MG, AT BEDTIME
  14. AMITRIPTYLINE [Concomitant]
     Active Substance: AMITRIPTYLINE
     Dosage: 2 TABLETS AT BEDTIME
  15. ACETIC ACID. [Concomitant]
     Active Substance: ACETIC ACID

REACTIONS (8)
  - Localised infection [Recovering/Resolving]
  - Peripheral swelling [Not Recovered/Not Resolved]
  - Skin wound [Recovering/Resolving]
  - Muscular weakness [Unknown]
  - Skin laceration [Recovering/Resolving]
  - Fall [Unknown]
  - Skin ulcer [Recovering/Resolving]
  - Gait disturbance [Unknown]

NARRATIVE: CASE EVENT DATE: 20200319
